FAERS Safety Report 6490260-8 (Version None)
Quarter: 2009Q4

REPORT INFORMATION
  Report Type: 
  Country: None (occurrence: None)
  Receive Date: 20091211
  Receipt Date: 20091202
  Transmission Date: 20100525
  Serious: Yes (Hospitalization)
  Sender: FDA-Public Use
  Company Number: JP-ASTRAZENECA-2009SE26158

PATIENT
  Age: 74 Year
  Sex: Female

DRUGS (2)
  1. IRESSA [Suspect]
     Indication: NON-SMALL CELL LUNG CANCER
     Route: 048
     Dates: start: 20090610
  2. IRESSA [Suspect]
     Route: 048

REACTIONS (1)
  - ANAEMIA [None]
